FAERS Safety Report 8376533-2 (Version None)
Quarter: 2012Q2

REPORT INFORMATION
  Report Type: 
  Country: None (occurrence: None)
  Receive Date: 20120522
  Receipt Date: 20120515
  Transmission Date: 20120825
  Serious: Yes (Hospitalization)
  Sender: FDA-Public Use
  Company Number: US-BAYER-2012-031544

PATIENT
  Age: 49 Year
  Sex: Female
  Weight: 56.689 kg

DRUGS (5)
  1. IRON [Concomitant]
     Indication: ANAEMIA
     Dosage: 10 MG, QD
     Dates: start: 20060101
  2. PEPCID [Concomitant]
     Dosage: UNK
     Dates: start: 20050903
  3. YASMIN [Suspect]
     Indication: PREMENSTRUAL SYNDROME
     Dosage: UNK
     Dates: start: 20050101, end: 20060101
  4. MS CONTIN [Concomitant]
     Dosage: UNK
     Dates: start: 20050903
  5. FERROUS SULFATE TAB [Concomitant]
     Dosage: UNK
     Dates: start: 20050903

REACTIONS (7)
  - DEEP VEIN THROMBOSIS [None]
  - CEREBROVASCULAR ACCIDENT [None]
  - THROMBOSIS [None]
  - MENTAL DISORDER [None]
  - AMNESIA [None]
  - FEELING ABNORMAL [None]
  - TRANSIENT ISCHAEMIC ATTACK [None]
